FAERS Safety Report 4702888-3 (Version None)
Quarter: 2005Q2

REPORT INFORMATION
  Report Type: 
  Country: None (occurrence: None)
  Receive Date: 20050622
  Receipt Date: 20050607
  Transmission Date: 20051028
  Serious: Yes (Hospitalization)
  Sender: FDA-Public Use
  Company Number: THYM-10573

PATIENT
  Age: 57 Year
  Sex: Male
  Weight: 70.4 kg

DRUGS (16)
  1. THYMOGLOBULIN [Suspect]
     Indication: IMMUNOSUPPRESSION
     Dosage: 100 MG QD IV
     Route: 042
     Dates: start: 20040518, end: 20040521
  2. VALTREX [Concomitant]
  3. MAGNESIUM OXIDE [Concomitant]
  4. COLACE [Concomitant]
  5. PROGRAF [Concomitant]
  6. NIFEREX FORTE [Concomitant]
  7. TOPROL-XL [Concomitant]
  8. ASPIRIN [Concomitant]
  9. PROTONIX [Concomitant]
  10. NEUPOGEN [Concomitant]
  11. LIPITOR [Concomitant]
  12. LANTUS [Concomitant]
  13. HUMALOG [Concomitant]
  14. ALTACE [Concomitant]
  15. FLAGYL [Concomitant]
  16. PREDNISONE TAB [Concomitant]

REACTIONS (6)
  - ABDOMINAL DISCOMFORT [None]
  - ANGINA UNSTABLE [None]
  - CHEST DISCOMFORT [None]
  - DYSPEPSIA [None]
  - EPIGASTRIC DISCOMFORT [None]
  - MYOCARDIAL ISCHAEMIA [None]
